FAERS Safety Report 8172035-7 (Version None)
Quarter: 2012Q1

REPORT INFORMATION
  Report Type: 
  Country: None (occurrence: None)
  Receive Date: 20120228
  Receipt Date: 20120220
  Transmission Date: 20120608
  Serious: Yes (Hospitalization)
  Sender: FDA-Public Use
  Company Number: FR-ASTRAZENECA-2012SE12439

PATIENT
  Age: 66 Year
  Sex: Female

DRUGS (12)
  1. QUETIAPINE FUMARATE [Suspect]
     Route: 048
     Dates: start: 20111223, end: 20111223
  2. ATARAX [Concomitant]
     Route: 048
  3. QUETIAPINE FUMARATE [Suspect]
     Route: 048
     Dates: start: 20111222, end: 20111222
  4. ZOLPIDEM [Concomitant]
     Route: 048
  5. MAGNE B6 [Concomitant]
     Route: 048
  6. QUETIAPINE FUMARATE [Suspect]
     Route: 048
     Dates: start: 20111224, end: 20120111
  7. POLYETHYLENE GLYCOL [Concomitant]
     Route: 048
  8. ACETAMINOPHEN [Concomitant]
     Route: 048
  9. AMLODIPINE [Concomitant]
     Route: 048
  10. PHLOROGLUCINOL [Concomitant]
     Route: 048
  11. QUETIAPINE FUMARATE [Suspect]
     Indication: DEPRESSION
     Route: 048
     Dates: start: 20111221, end: 20111221
  12. LEVOTHYROXINE SODIUM [Concomitant]
     Route: 048

REACTIONS (1)
  - COLITIS ISCHAEMIC [None]
